FAERS Safety Report 24560388 (Version 1)
Quarter: 2024Q4

REPORT INFORMATION
  Report Type: Spontaneous
  Country: JP (occurrence: JP)
  Receive Date: 20241029
  Receipt Date: 20241029
  Transmission Date: 20250115
  Serious: Yes (Death, Other)
  Sender: STRIDES
  Company Number: JP-STRIDES ARCOLAB LIMITED-2024SP013858

PATIENT
  Age: 79 Year
  Sex: Female

DRUGS (11)
  1. METHOTREXATE [Suspect]
     Active Substance: METHOTREXATE
     Indication: Rheumatoid arthritis
     Dosage: UNK
     Route: 065
  2. PREDNISOLONE [Suspect]
     Active Substance: PREDNISOLONE
     Indication: Rheumatoid arthritis
     Dosage: UNK
     Route: 065
  3. SULFASALAZINE [Suspect]
     Active Substance: SULFASALAZINE
     Indication: Rheumatoid arthritis
     Dosage: UNK
     Route: 065
  4. BRENTUXIMAB VEDOTIN [Suspect]
     Active Substance: BRENTUXIMAB VEDOTIN
     Indication: Immune system disorder
     Dosage: UNK (A-AVD REGIMEN)
     Route: 065
  5. BRENTUXIMAB VEDOTIN [Suspect]
     Active Substance: BRENTUXIMAB VEDOTIN
     Indication: Epstein-Barr virus associated lymphoproliferative disorder
  6. ADRIAMYCIN [Suspect]
     Active Substance: DOXORUBICIN HYDROCHLORIDE
     Indication: Immune system disorder
     Dosage: UNK (A-AVD REGIMEN)
     Route: 065
  7. ADRIAMYCIN [Suspect]
     Active Substance: DOXORUBICIN HYDROCHLORIDE
     Indication: Epstein-Barr virus associated lymphoproliferative disorder
  8. VINBLASTINE [Suspect]
     Active Substance: VINBLASTINE
     Indication: Immune system disorder
     Dosage: UNK (A-AVD REGIMEN)
     Route: 065
  9. VINBLASTINE [Suspect]
     Active Substance: VINBLASTINE
     Indication: Epstein-Barr virus associated lymphoproliferative disorder
  10. DACARBAZINE [Suspect]
     Active Substance: DACARBAZINE
     Indication: Immune system disorder
     Dosage: UNK (A-AVD REGIMEN)
     Route: 065
  11. DACARBAZINE [Suspect]
     Active Substance: DACARBAZINE
     Indication: Epstein-Barr virus associated lymphoproliferative disorder

REACTIONS (3)
  - Death [Fatal]
  - Immune system disorder [Unknown]
  - Epstein-Barr virus associated lymphoproliferative disorder [Unknown]
